FAERS Safety Report 24913061 (Version 1)
Quarter: 2025Q1

REPORT INFORMATION
  Report Type: Spontaneous
  Country: US (occurrence: US)
  Receive Date: 20250201
  Receipt Date: 20250201
  Transmission Date: 20250408
  Serious: No
  Sender: ABBVIE
  Company Number: US-ABBVIE-6103899

PATIENT
  Age: 24 Year
  Sex: Female
  Weight: 86.183 kg

DRUGS (2)
  1. UBRELVY [Suspect]
     Active Substance: UBROGEPANT
     Indication: Headache
     Route: 048
  2. SYNTHROID [Concomitant]
     Active Substance: LEVOTHYROXINE SODIUM
     Indication: Product used for unknown indication

REACTIONS (4)
  - Fall [Unknown]
  - Dizziness [Unknown]
  - Physical product label issue [Unknown]
  - Constipation [Unknown]

NARRATIVE: CASE EVENT DATE: 20250101
